FAERS Safety Report 9124649 (Version 1)
Quarter: 2013Q1

REPORT INFORMATION
  Report Type: Spontaneous
  Country: CH (occurrence: CH)
  Receive Date: 20130227
  Receipt Date: 20130227
  Transmission Date: 20140127
  Serious: Yes (Death, Hospitalization)
  Sender: FDA-Public Use
  Company Number: CH-ROCHE-1194210

PATIENT
  Age: 87 Year
  Sex: Male

DRUGS (3)
  1. LUCENTIS [Suspect]
     Indication: MACULAR DEGENERATION
     Dosage: LAST DOSE RECIEVED ON 18/JUL/2012
     Route: 031
     Dates: start: 20110926
  2. MARCOUMAR [Suspect]
     Indication: PERIPHERAL VASCULAR DISORDER
     Route: 048
     Dates: end: 20121219
  3. BILOL [Concomitant]
     Indication: HYPERTENSION

REACTIONS (5)
  - Cerebellar haemorrhage [Fatal]
  - Brain compression [Fatal]
  - Brain herniation [Fatal]
  - Hydrocephalus [Fatal]
  - International normalised ratio increased [Fatal]
